FAERS Safety Report 8163108-3 (Version None)
Quarter: 2012Q1

REPORT INFORMATION
  Report Type: 
  Country: None (occurrence: None)
  Receive Date: 20120224
  Receipt Date: 20110201
  Transmission Date: 20120608
  Serious: No
  Sender: FDA-Public Use
  Company Number: US-PFIZER INC-K201100129

PATIENT
  Age: 57 Year
  Sex: Female
  Weight: 51.247 kg

DRUGS (3)
  1. FLECTOR [Suspect]
     Indication: INTERVERTEBRAL DISC DISORDER
  2. FLECTOR [Suspect]
     Indication: MUSCLE DISORDER
     Dosage: 1 PATCH FOR 12 HOURS AS NEEDED
     Route: 061
     Dates: start: 20100601
  3. IBUPROFEN [Concomitant]
     Dosage: UNK

REACTIONS (1)
  - DRUG INEFFECTIVE [None]
